FAERS Safety Report 5797711-2 (Version None)
Quarter: 2008Q3

REPORT INFORMATION
  Report Type: 
  Country: None (occurrence: None)
  Receive Date: 20080702
  Receipt Date: 20080630
  Transmission Date: 20090109
  Serious: Yes (Hospitalization)
  Sender: FDA-Public Use
  Company Number: US-BRISTOL-MYERS SQUIBB COMPANY-14245658

PATIENT
  Age: 51 Year
  Sex: Female
  Weight: 93 kg

DRUGS (13)
  1. COUMADIN [Suspect]
     Dates: start: 19960101
  2. SEROQUEL [Concomitant]
     Dosage: 4-5YEARS.
  3. TEMAZEPAM [Concomitant]
     Dosage: AT BED TIME (13-14YEARS).
  4. LASIX [Concomitant]
     Dosage: TAKEN FOR MANY YEARS.
  5. CYMBALTA [Concomitant]
  6. SPIRIVA [Concomitant]
     Dosage: TAKEN FOR MANY YEARS.
  7. ALBUTEROL [Concomitant]
     Dosage: 2 DOSAGE FORM = 2PUFFS,EVERY 4 HOURS AND AS NEEDED,TAKEN FOR MANY YEARS.
  8. REQUIP [Concomitant]
     Dosage: TAKEN AT NIGHT FOR MANY YEARS.
  9. ADVAIR DISKUS 100/50 [Concomitant]
     Dosage: 1 DOSAGE FORM=500/50 1 PUFF,TAKEN FOR MANY YEARS.
  10. LORAZEPAM [Concomitant]
     Dosage: TAKEN FOR MANY YEARS.
  11. NITROGLYCERIN SL [Concomitant]
     Dosage: TAKEN FOR MANY YEARS.
  12. DARVOCET [Concomitant]
     Dosage: TAKEN FOR MANY YEARS.
  13. HYDROCODONE [Concomitant]
     Dosage: TAKEN FOR MANY YEARS.

REACTIONS (5)
  - ABDOMINAL MASS [None]
  - ANAEMIA [None]
  - CONTUSION [None]
  - INTERNATIONAL NORMALISED RATIO FLUCTUATION [None]
  - SWELLING [None]
